FAERS Safety Report 7772712-3 (Version None)
Quarter: 2011Q3

REPORT INFORMATION
  Report Type: 
  Country: None (occurrence: None)
  Receive Date: 20110922
  Receipt Date: 20110113
  Transmission Date: 20111222
  Serious: Yes (Hospitalization)
  Sender: FDA-Public Use
  Company Number: US-ASTRAZENECA-2007UW16278

PATIENT
  Age: 8796 Day
  Sex: Female
  Weight: 46.9 kg

DRUGS (13)
  1. SEROQUEL [Suspect]
     Dosage: 25-50 MG
     Route: 048
     Dates: start: 20070524
  2. METRONIDAZOLE [Concomitant]
     Dates: start: 20060413
  3. TEGRETOL [Concomitant]
     Route: 048
     Dates: start: 20060718
  4. SEROQUEL [Suspect]
     Indication: INSOMNIA
     Dosage: 50-200 MG
     Route: 048
     Dates: start: 20040803, end: 20060626
  5. SEROQUEL [Suspect]
     Dosage: 25 TO 50 MG
     Route: 048
     Dates: start: 20051130, end: 20060626
  6. VALIUM [Concomitant]
     Dates: start: 20050527
  7. XANAX [Concomitant]
     Route: 048
     Dates: start: 20060718
  8. SEROQUEL [Suspect]
     Dosage: 100-200 MG
     Route: 048
     Dates: start: 20060103
  9. NITROFURANTOIN [Concomitant]
     Dates: start: 20060413
  10. DIAZEPAM [Concomitant]
     Dates: start: 20060418
  11. TRILEPTAL [Concomitant]
     Dates: start: 20060418
  12. EFFEXOR XR [Concomitant]
     Dosage: 150 MG TO 300 MG
     Dates: start: 20050527
  13. GEODON [Concomitant]
     Route: 048
     Dates: start: 20060718

REACTIONS (2)
  - DIABETES MELLITUS INADEQUATE CONTROL [None]
  - TYPE 1 DIABETES MELLITUS [None]
